FAERS Safety Report 16408181 (Version 2)
Quarter: 2019Q4

REPORT INFORMATION
  Report Type: Report from Study
  Country: US (occurrence: US)
  Receive Date: 20190610
  Receipt Date: 20191209
  Transmission Date: 20200122
  Serious: Yes (Hospitalization)
  Sender: FDA-Public Use
  Company Number: US-BIOGEN-2019BI00748580

PATIENT
  Sex: Male

DRUGS (2)
  1. TECFIDERA [Suspect]
     Active Substance: DIMETHYL FUMARATE
     Indication: MULTIPLE SCLEROSIS
     Route: 048
     Dates: start: 20150925, end: 20170613
  2. TECFIDERA [Suspect]
     Active Substance: DIMETHYL FUMARATE
     Dosage: MAINTENANCE DOSE
     Route: 065

REACTIONS (7)
  - Multiple sclerosis relapse [Recovered/Resolved]
  - Drug ineffective [Not Recovered/Not Resolved]
  - Memory impairment [Unknown]
  - Visual acuity reduced [Unknown]
  - Malaise [Recovered/Resolved]
  - Central nervous system lesion [Unknown]
  - Back pain [Recovered/Resolved]
